FAERS Safety Report 9025963 (Version 1)
Quarter: 2012Q4

REPORT INFORMATION
  Report Type: Spontaneous
  Country: US (occurrence: None)
  Receive Date: 20121214
  Receipt Date: 20121214
  Transmission Date: 20130627
  Serious: No
  Sender: FDA-Public Use
  Company Number: None

PATIENT
  Sex: Female
  Weight: 107.96 kg

DRUGS (1)
  1. MIRENA IUD [Suspect]

REACTIONS (6)
  - Abdominal pain [None]
  - Neoplasm recurrence [None]
  - Ovarian cyst [None]
  - Device dislocation [None]
  - Medical device complication [None]
  - Haemorrhage [None]
